FAERS Safety Report 11463666 (Version 1)
Quarter: 2015Q3

REPORT INFORMATION
  Report Type: Spontaneous
  Country: US (occurrence: US)
  Receive Date: 20150831
  Receipt Date: 20150831
  Transmission Date: 20151125
  Serious: No
  Sender: FDA-Public Use
  Company Number: US-ELI_LILLY_AND_COMPANY-US201104002054

PATIENT
  Age: 73 Year
  Sex: Female

DRUGS (3)
  1. OXYCONTIN [Concomitant]
     Active Substance: OXYCODONE HYDROCHLORIDE
  2. CYMBALTA [Suspect]
     Active Substance: DULOXETINE HYDROCHLORIDE
     Indication: BACK PAIN
     Dosage: 60 MG, QD
     Dates: start: 201009
  3. SOMA [Concomitant]
     Active Substance: CARISOPRODOL

REACTIONS (13)
  - Drug withdrawal syndrome [Not Recovered/Not Resolved]
  - Sleep disorder [Not Recovered/Not Resolved]
  - Middle insomnia [Unknown]
  - Abdominal pain upper [Recovering/Resolving]
  - Dry mouth [Unknown]
  - Myalgia [Recovering/Resolving]
  - Crying [Unknown]
  - Anger [Not Recovered/Not Resolved]
  - Constipation [Recovered/Resolved]
  - Abnormal behaviour [Unknown]
  - Initial insomnia [Not Recovered/Not Resolved]
  - Night sweats [Unknown]
  - Hyperhidrosis [Not Recovered/Not Resolved]
